FAERS Safety Report 13047599 (Version 1)
Quarter: 2016Q4

REPORT INFORMATION
  Report Type: Spontaneous
  Country: MX (occurrence: MX)
  Receive Date: 20161220
  Receipt Date: 20161220
  Transmission Date: 20170207
  Serious: Yes (Other)
  Sender: FDA-Public Use
  Company Number: MX-ALLERGAN-1681313US

PATIENT
  Age: 13 Year
  Sex: Male

DRUGS (3)
  1. DAPSONE UNK [Suspect]
     Active Substance: DAPSONE
     Indication: URTICARIA
     Dosage: UNK
     Route: 065
  2. DAPSONE UNK [Suspect]
     Active Substance: DAPSONE
     Indication: BLISTER
  3. DAPSONE UNK [Suspect]
     Active Substance: DAPSONE
     Indication: SCAB

REACTIONS (2)
  - Off label use [Unknown]
  - Angioedema [Unknown]
